FAERS Safety Report 6552242-7 (Version None)
Quarter: 2010Q1

REPORT INFORMATION
  Report Type: 
  Country: None (occurrence: None)
  Receive Date: 20100126
  Receipt Date: 20100114
  Transmission Date: 20100710
  Serious: Yes (Other)
  Sender: FDA-Public Use
  Company Number: US-MYLANLABS-2009S1019190

PATIENT
  Age: 24 Year
  Sex: Female

DRUGS (1)
  1. AMNESTEEM [Suspect]
     Route: 048
     Dates: start: 20090922, end: 20091006

REACTIONS (5)
  - ACCIDENTAL EXPOSURE [None]
  - ALOPECIA [None]
  - DRUG EXPOSURE DURING PREGNANCY [None]
  - EYE IRRITATION [None]
  - PREGNANCY [None]
